FAERS Safety Report 5680120-4 (Version None)
Quarter: 2008Q1

REPORT INFORMATION
  Report Type: 
  Country: None (occurrence: None)
  Receive Date: 20080326
  Receipt Date: 20080319
  Transmission Date: 20080703
  Serious: Yes (Death, Life-Threatening, Other)
  Sender: FDA-Public Use
  Company Number: AR-NOVOPROD-273409

PATIENT
  Sex: Female
  Weight: 2.85 kg

DRUGS (1)
  1. LEVEMIR [Suspect]
     Indication: DRUG USE FOR UNKNOWN INDICATION
     Route: 064

REACTIONS (8)
  - CAESAREAN SECTION [None]
  - CARDIOPULMONARY FAILURE [None]
  - DRUG EXPOSURE DURING PREGNANCY [None]
  - HYPOGLYCAEMIA [None]
  - METABOLIC ACIDOSIS [None]
  - PREMATURE BABY [None]
  - PULMONARY HYPERTENSION [None]
  - RESPIRATORY DISTRESS [None]
